FAERS Safety Report 9417147 (Version 2)
Quarter: 2013Q3

REPORT INFORMATION
  Report Type: Spontaneous
  Country: KR (occurrence: KR)
  Receive Date: 20130722
  Receipt Date: 20130828
  Transmission Date: 20140515
  Serious: Yes (Hospitalization)
  Sender: FDA-Public Use
  Company Number: TPA2013A06685

PATIENT
  Age: 57 Year
  Sex: Female

DRUGS (2)
  1. COLCHICINE (COLCHICINE) [Suspect]
     Indication: GOUT
  2. CYCLOSPORINE (CICLOSPORIN) [Concomitant]

REACTIONS (5)
  - Pelvic pain [None]
  - Asthenia [None]
  - Myopathy [None]
  - Neuropathy peripheral [None]
  - Drug interaction [None]
